FAERS Safety Report 6699801-9 (Version None)
Quarter: 2010Q2

REPORT INFORMATION
  Report Type: 
  Country: None (occurrence: None)
  Receive Date: 20100428
  Receipt Date: 20091102
  Transmission Date: 20101027
  Serious: No
  Sender: FDA-Public Use
  Company Number: A0829330A

PATIENT
  Age: 71 Year
  Sex: Female

DRUGS (1)
  1. LUXIQ [Suspect]
     Indication: RASH
     Dosage: 0PCT TWICE PER DAY
     Route: 061
     Dates: start: 20091001

REACTIONS (2)
  - DRUG ADMINISTERED AT INAPPROPRIATE SITE [None]
  - DRY SKIN [None]
